FAERS Safety Report 19999069 (Version 3)
Quarter: 2021Q4

REPORT INFORMATION
  Report Type: Spontaneous
  Country: US (occurrence: US)
  Receive Date: 20211026
  Receipt Date: 20211108
  Transmission Date: 20220303
  Serious: No
  Sender: FDA-Public Use
  Company Number: US-ALXN-A202111558

PATIENT
  Age: 14 Year
  Sex: Female
  Weight: 61.6 kg

DRUGS (2)
  1. STRENSIQ [Suspect]
     Active Substance: ASFOTASE ALFA
     Indication: Hypophosphatasia
     Dosage: 123 MG (1.23 ML), TIW
     Route: 058
     Dates: start: 202105
  2. NABUMETONE [Concomitant]
     Active Substance: NABUMETONE
     Indication: Back pain
     Dosage: 500 MG, BID
     Route: 065
     Dates: start: 20210709

REACTIONS (1)
  - Lymphadenopathy [Unknown]

NARRATIVE: CASE EVENT DATE: 20210901
